FAERS Safety Report 8210097-9 (Version None)
Quarter: 2012Q1

REPORT INFORMATION
  Report Type: 
  Country: None (occurrence: None)
  Receive Date: 20120314
  Receipt Date: 20110708
  Transmission Date: 20120608
  Serious: No
  Sender: FDA-Public Use
  Company Number: US-ASTRAZENECA-2011SE41311

PATIENT
  Age: 58 Year
  Sex: Female

DRUGS (1)
  1. TOPROL-XL [Suspect]
     Route: 048

REACTIONS (9)
  - PRURITUS [None]
  - ABDOMINAL DISCOMFORT [None]
  - NAUSEA [None]
  - DRUG DOSE OMISSION [None]
  - DRUG HYPERSENSITIVITY [None]
  - VOMITING [None]
  - BURNING SENSATION [None]
  - HEART RATE DECREASED [None]
  - RASH PRURITIC [None]
